FAERS Safety Report 6291358-X (Version None)
Quarter: 2009Q3

REPORT INFORMATION
  Report Type: 
  Country: None (occurrence: None)
  Receive Date: 20090730
  Receipt Date: 20090717
  Transmission Date: 20100115
  Serious: Yes (Hospitalization, Other)
  Sender: FDA-Public Use
  Company Number: FR-ELI_LILLY_AND_COMPANY-FR200907003604

PATIENT
  Sex: Female

DRUGS (6)
  1. GEMZAR [Suspect]
     Indication: PANCREATIC CARCINOMA
     Dosage: 2200 MG, UNKNOWN
     Route: 042
     Dates: start: 20080530
  2. ONDANSETRON HCL [Concomitant]
     Indication: PANCREATIC CARCINOMA
     Dosage: 1 D/F, DAILY (1/D)
     Route: 042
     Dates: start: 20080530, end: 20080909
  3. DEXAMETHASONE [Concomitant]
     Indication: PANCREATIC CARCINOMA
     Dosage: 20 MG, DAILY (1/D)
     Route: 042
     Dates: start: 20080530, end: 20080909
  4. PARIET [Concomitant]
     Dosage: 20 MG, DAILY (1/D)
     Route: 048
  5. ALDACTONE [Concomitant]
     Dosage: 50 MG, DAILY (1/D)
  6. LASIX [Concomitant]
     Dosage: 20 MG, DAILY (1/D)

REACTIONS (9)
  - ABNORMAL BEHAVIOUR [None]
  - ASPARTATE AMINOTRANSFERASE INCREASED [None]
  - BLOOD ALKALINE PHOSPHATASE INCREASED [None]
  - BLOOD LACTATE DEHYDROGENASE INCREASED [None]
  - ENCEPHALOPATHY [None]
  - GAMMA-GLUTAMYLTRANSFERASE INCREASED [None]
  - GENERAL PHYSICAL HEALTH DETERIORATION [None]
  - NEUTROPENIA [None]
  - PLATELET COUNT DECREASED [None]
